FAERS Safety Report 20379160 (Version 1)
Quarter: 2022Q1

REPORT INFORMATION
  Report Type: Spontaneous
  Country: None (occurrence: GB)
  Receive Date: 20220126
  Receipt Date: 20220126
  Transmission Date: 20220423
  Serious: Yes (Life-Threatening, Hospitalization)
  Sender: FDA-Public Use
  Company Number: GB-Breckenridge Pharmaceutical, Inc.-2124303

PATIENT
  Sex: Male

DRUGS (4)
  1. OMEPRAZOLE [Suspect]
     Active Substance: OMEPRAZOLE
     Route: 064
  2. PROCHLORPERAZINE [Concomitant]
     Active Substance: PROCHLORPERAZINE
  3. METOCLOPRAMIDE [Suspect]
     Active Substance: METOCLOPRAMIDE
  4. CYCLIZINE [Concomitant]
     Active Substance: CYCLIZINE

REACTIONS (5)
  - Necrotising enterocolitis neonatal [Unknown]
  - Meconium abnormal [Unknown]
  - Abdominal distension [Unknown]
  - Laparotomy [Unknown]
  - Exposure during pregnancy [Unknown]
